FAERS Safety Report 5935345-7 (Version None)
Quarter: 2008Q4

REPORT INFORMATION
  Report Type: 
  Country: None (occurrence: None)
  Receive Date: 20081029
  Receipt Date: 20081029
  Transmission Date: 20090506
  Serious: Yes (Hospitalization)
  Sender: FDA-Public Use
  Company Number: None

PATIENT
  Sex: Female
  Weight: 115.46 kg

DRUGS (2)
  1. CARBOPLATIN [Suspect]
     Dosage: 573 MG
  2. TAXOL [Suspect]
     Dosage: 350 MG

REACTIONS (2)
  - DYSPNOEA [None]
  - PLEURAL EFFUSION [None]
